FAERS Safety Report 25229296 (Version 2)
Quarter: 2025Q2

REPORT INFORMATION
  Report Type: Report from Study
  Country: CA (occurrence: CA)
  Receive Date: 20250423
  Receipt Date: 20250429
  Transmission Date: 20250716
  Serious: Yes (Other)
  Sender: TAKEDA
  Company Number: CA-TAKEDA-2025TUS033199

PATIENT
  Age: 63 Year
  Sex: Male

DRUGS (13)
  1. VEDOLIZUMAB [Suspect]
     Active Substance: VEDOLIZUMAB
     Indication: Colitis ulcerative
  2. VEDOLIZUMAB [Suspect]
     Active Substance: VEDOLIZUMAB
     Dosage: 300 MILLIGRAM, Q4WEEKS
     Dates: start: 20250423
  3. PREDNISONE [Concomitant]
     Active Substance: PREDNISONE
  4. SAXENDA [Concomitant]
     Active Substance: LIRAGLUTIDE
  5. BISOPROLOL [Concomitant]
     Active Substance: BISOPROLOL
  6. ROSUVASTATIN [Concomitant]
     Active Substance: ROSUVASTATIN
  7. CANDESARTAN [Concomitant]
     Active Substance: CANDESARTAN
  8. ASPIRIN [Concomitant]
     Active Substance: ASPIRIN
  9. LUTEIN [Concomitant]
     Active Substance: LUTEIN
  10. VITAMIN D3 [Concomitant]
     Active Substance: CHOLECALCIFEROL
  11. GLUCOSAMINE [Concomitant]
     Active Substance: GLUCOSAMINE
  12. HERBALS\TURMERIC [Concomitant]
     Active Substance: HERBALS\TURMERIC
  13. OMEGA 3 [Concomitant]
     Active Substance: CAPSAICIN

REACTIONS (2)
  - Colitis ulcerative [Unknown]
  - Off label use [Unknown]

NARRATIVE: CASE EVENT DATE: 20250423
